FAERS Safety Report 25505964 (Version 1)
Quarter: 2025Q3

REPORT INFORMATION
  Report Type: Spontaneous
  Country: US (occurrence: US)
  Receive Date: 20250702
  Receipt Date: 20250702
  Transmission Date: 20251021
  Serious: Yes (Hospitalization, Other)
  Sender: Alora Pharma
  Company Number: US-ACELLA PHARMACEUTICALS, LLC-2025ALO02305

PATIENT
  Age: 37 Year
  Sex: Female

DRUGS (6)
  1. BENZONATATE [Suspect]
     Active Substance: BENZONATATE
  2. METHADONE [Suspect]
     Active Substance: METHADONE HYDROCHLORIDE
     Route: 048
  3. CEFUROXIME [Suspect]
     Active Substance: CEFUROXIME
     Route: 048
  4. FLUOXETINE [Suspect]
     Active Substance: FLUOXETINE HYDROCHLORIDE
     Route: 048
  5. ALCOHOL [Suspect]
     Active Substance: ALCOHOL
     Route: 048
  6. CLONAZEPAM [Suspect]
     Active Substance: CLONAZEPAM
     Route: 048

REACTIONS (4)
  - Coma [Unknown]
  - Lethargy [Unknown]
  - Accidental exposure to product [Unknown]
  - Dysarthria [Unknown]
